FAERS Safety Report 8487063-1 (Version None)
Quarter: 2012Q3

REPORT INFORMATION
  Report Type: 
  Country: None (occurrence: None)
  Receive Date: 20120704
  Receipt Date: 20120628
  Transmission Date: 20120928
  Serious: Yes (Other)
  Sender: FDA-Public Use
  Company Number: PHEH2012US008812

PATIENT
  Sex: Female
  Weight: 65.76 kg

DRUGS (5)
  1. VITAMIN D [Concomitant]
  2. VITAMIN B-12 [Concomitant]
  3. GILENYA [Suspect]
     Indication: MULTIPLE SCLEROSIS
     Dosage: 0.5 MG, QD
     Route: 048
     Dates: start: 20111101, end: 20120201
  4. LEXAPRO [Concomitant]
  5. SYNTHROID [Concomitant]

REACTIONS (4)
  - DYSPNOEA [None]
  - LUNG NEOPLASM [None]
  - CONDITION AGGRAVATED [None]
  - DIZZINESS [None]
